FAERS Safety Report 5946618-6 (Version None)
Quarter: 2008Q4

REPORT INFORMATION
  Report Type: 
  Country: None (occurrence: None)
  Receive Date: 20081110
  Receipt Date: 20081031
  Transmission Date: 20090506
  Serious: Yes (Life-Threatening)
  Sender: FDA-Public Use
  Company Number: FR-ROCHE-594837

PATIENT
  Age: 27 Year
  Sex: Female

DRUGS (5)
  1. RIVOTRIL [Suspect]
     Indication: PNEUMONITIS
     Dosage: DRUG NAME REPORTED AS RIVOTRIL ROCHE.
     Route: 048
     Dates: start: 20080803, end: 20080806
  2. RIVOTRIL [Suspect]
     Route: 048
     Dates: start: 20080808, end: 20080816
  3. VANCOMYCIN HCL [Suspect]
     Indication: MENINGITIS
     Dosage: DOSAGE FORM: INJECTABLE SOLUTION.
     Route: 042
     Dates: start: 20080806, end: 20080815
  4. CLAFORAN [Suspect]
     Indication: PNEUMONITIS
     Dosage: DOSAGE FORM: INJECTABLE SOLUTION.
     Route: 042
     Dates: start: 20080803, end: 20080806
  5. CLAFORAN [Suspect]
     Dosage: INDICATION: MENINGITIS. DOSE: 3 GM FOR 4 DAYS.
     Route: 042
     Dates: start: 20080806, end: 20080810

REACTIONS (1)
  - CYTOLYTIC HEPATITIS [None]
